FAERS Safety Report 17961863 (Version 1)
Quarter: 2020Q2

REPORT INFORMATION
  Report Type: Spontaneous
  Country: US (occurrence: US)
  Receive Date: 20200629
  Receipt Date: 20200629
  Transmission Date: 20200714
  Serious: No
  Sender: FDA-Public Use
  Company Number: None

PATIENT
  Age: 54 Year
  Sex: Male
  Weight: 115 kg

DRUGS (2)
  1. INSULIN (INSULIN DETERMIR, HUMA 100UNIT/ML INJ [Suspect]
     Active Substance: INSULIN DETEMIR
     Indication: DIABETES MELLITUS
     Dates: start: 20111129, end: 20200108
  2. INSULIN (INSULIN,ASPART, HUMAN 100UNIT/ML INJ ) [Suspect]
     Active Substance: INSULIN ASPART
     Indication: DIABETES MELLITUS
     Route: 058
     Dates: start: 20140914

REACTIONS (2)
  - Asthenia [None]
  - Hypoglycaemia [None]

NARRATIVE: CASE EVENT DATE: 20200108
